FAERS Safety Report 21361848 (Version 1)
Quarter: 2022Q3

REPORT INFORMATION
  Report Type: Spontaneous
  Country: GB (occurrence: GB)
  Receive Date: 20220922
  Receipt Date: 20220922
  Transmission Date: 20221026
  Serious: Yes (Other)
  Sender: FDA-Public Use
  Company Number: None

PATIENT
  Age: 77 Year
  Sex: Male
  Weight: 69 kg

DRUGS (7)
  1. MEMANTINE [Suspect]
     Active Substance: MEMANTINE
     Indication: Product used for unknown indication
     Dates: start: 20220524
  2. MEMANTINE [Suspect]
     Active Substance: MEMANTINE
  3. BRINZOLAMIDE [Concomitant]
     Active Substance: BRINZOLAMIDE
     Indication: Product used for unknown indication
     Dosage: LEFT EYE.
     Dates: start: 20200206
  4. CETIRIZINE [Concomitant]
     Active Substance: CETIRIZINE HYDROCHLORIDE
     Indication: Pruritus
     Dosage: BEFORE BED
     Dates: start: 20220831
  5. CETRABEN [Concomitant]
     Indication: Product used for unknown indication
     Dosage: APPLY UP TO 8 TIMES A DAY TO WHOLE BODY.
     Dates: start: 20220831
  6. PREDNISOLONE [Concomitant]
     Active Substance: PREDNISOLONE
     Indication: Product used for unknown indication
     Dosage: EACH MORNING FOR A WEEK.
     Dates: start: 20220831
  7. SIMVASTATIN [Concomitant]
     Active Substance: SIMVASTATIN
     Indication: Product used for unknown indication
     Dosage: AT BEDTIME
     Dates: start: 20220523

REACTIONS (1)
  - Dermatitis allergic [Recovering/Resolving]
